FAERS Safety Report 7709172-4 (Version None)
Quarter: 2011Q3

REPORT INFORMATION
  Report Type: 
  Country: None (occurrence: None)
  Receive Date: 20110825
  Receipt Date: 20110816
  Transmission Date: 20111222
  Serious: Yes (Hospitalization)
  Sender: FDA-Public Use
  Company Number: PHHO2011AU12545

PATIENT
  Sex: Male
  Weight: 80 kg

DRUGS (19)
  1. NEORAL [Suspect]
     Indication: RENAL TRANSPLANT
     Dosage: 250 MG, UNK
     Route: 048
     Dates: start: 20110527
  2. PREDNISONE [Concomitant]
     Indication: RENAL TRANSPLANT
     Dosage: 30 MG, UNK
  3. CALCIUM CARBONATE [Concomitant]
     Indication: BLOOD CALCIUM DECREASED
     Dosage: 1.5 G, UNK
     Route: 048
  4. NEORAL [Suspect]
     Dosage: 200 MG, UNK
     Route: 048
  5. PREDNISONE [Concomitant]
     Dosage: 17.5 MG, UNK
  6. VALGANCICLOVIR [Concomitant]
     Indication: INFECTION PROPHYLAXIS
     Dosage: 450 MG, UNK
     Route: 048
  7. NEORAL [Suspect]
     Dosage: 75 MG, UNK
     Route: 048
  8. MYFORTIC [Concomitant]
     Indication: RENAL TRANSPLANT
     Dosage: 720 MG, BID
     Route: 048
     Dates: start: 20110527
  9. OXYCODONE HCL [Concomitant]
     Indication: PAIN
     Dosage: 50 MG, UNK
  10. DOCUSATE SODIUM W/SENNA [Concomitant]
     Indication: CONSTIPATION
     Dosage: UNK
  11. DILTIAZEM [Concomitant]
     Indication: HYPERTENSION
     Dosage: 180 MG, UNK
     Route: 048
  12. ACETAMINOPHEN [Concomitant]
     Indication: PAIN
     Dosage: 1000 MG, UNK
     Route: 048
  13. ESOMEPRAZOLE MAGNESIUM [Concomitant]
     Indication: GASTROOESOPHAGEAL REFLUX DISEASE
     Dosage: 40 MG, UNK
     Route: 048
  14. SODIUM BICARBONATE [Concomitant]
     Indication: METABOLIC ACIDOSIS
     Dosage: 840 MG, UNK
     Route: 048
  15. SIMAVASTATIN [Concomitant]
     Indication: BLOOD CHOLESTEROL
     Dosage: 40 MG, UNK
     Route: 048
  16. LACTULOSE [Concomitant]
     Indication: CONSTIPATION
     Dosage: 3.34 G, UNK
  17. NEORAL [Suspect]
     Dosage: 125 MG, UNK
     Route: 048
  18. SULFAMETHOXAZOLE AND TRIMETHOPRIM [Concomitant]
     Indication: INFECTION PROPHYLAXIS
     Dosage: UNK
  19. PERINDOPRIL [Concomitant]
     Indication: HYPERTENSION
     Dosage: 5 MG, UNK

REACTIONS (4)
  - RENAL IMPAIRMENT [None]
  - HYPERTENSION [None]
  - FLUID OVERLOAD [None]
  - RENAL ARTERY STENOSIS [None]
